FAERS Safety Report 19256863 (Version 4)
Quarter: 2022Q2

REPORT INFORMATION
  Report Type: Spontaneous
  Country: US (occurrence: US)
  Receive Date: 20210513
  Receipt Date: 20220518
  Transmission Date: 20220721
  Serious: Yes (Life-Threatening, Hospitalization)
  Sender: FDA-Public Use
  Company Number: US-TEVA-2021-US-1910080

PATIENT
  Age: 58 Year
  Sex: Female

DRUGS (3)
  1. BACLOFEN [Suspect]
     Active Substance: BACLOFEN
     Indication: Product used for unknown indication
     Dosage: 30 MILLIGRAM DAILY;
     Route: 048
  2. PHENOBARBITAL [Suspect]
     Active Substance: PHENOBARBITAL
     Indication: Withdrawal syndrome
     Route: 065
  3. ATIVAN [Suspect]
     Active Substance: LORAZEPAM
     Indication: Withdrawal syndrome
     Route: 065

REACTIONS (13)
  - Withdrawal syndrome [Recovering/Resolving]
  - Tremor [Recovering/Resolving]
  - Hyperpyrexia [Recovering/Resolving]
  - Paraesthesia [Recovering/Resolving]
  - Hypertension [Recovering/Resolving]
  - Tachypnoea [Recovering/Resolving]
  - Tachycardia [Recovering/Resolving]
  - Hallucination [Recovering/Resolving]
  - Clonus [Recovering/Resolving]
  - Eye disorder [Recovering/Resolving]
  - Muscle rigidity [Recovering/Resolving]
  - Respiratory distress [Recovering/Resolving]
  - Drug ineffective [Unknown]
